FAERS Safety Report 16706145 (Version 6)
Quarter: 2019Q3

REPORT INFORMATION
  Report Type: Report from Study
  Country: AU (occurrence: AU)
  Receive Date: 20190815
  Receipt Date: 20190912
  Transmission Date: 20191004
  Serious: Yes (Hospitalization)
  Sender: FDA-Public Use
  Company Number: PHHO2019AU003567

PATIENT
  Age: 32 Year
  Sex: Male
  Weight: 98 kg

DRUGS (4)
  1. PREDNISOLONE. [Suspect]
     Active Substance: PREDNISOLONE
     Indication: ACUTE GRAFT VERSUS HOST DISEASE
     Dosage: 250 MG, QD
     Route: 048
     Dates: start: 20190313, end: 20190501
  2. CYCLOSPORINE. [Suspect]
     Active Substance: CYCLOSPORINE
     Indication: ACUTE GRAFT VERSUS HOST DISEASE
     Dosage: 175 MG, BID
     Route: 048
     Dates: start: 20190313
  3. CYCLOSPORINE. [Suspect]
     Active Substance: CYCLOSPORINE
     Dosage: UNK
     Route: 048
  4. INC424 [Suspect]
     Active Substance: RUXOLITINIB
     Indication: CHRONIC GRAFT VERSUS HOST DISEASE
     Dosage: 5 MG, BID
     Route: 048
     Dates: start: 20190313, end: 20190502

REACTIONS (2)
  - Sinusitis [Recovered/Resolved with Sequelae]
  - Mucormycosis [Recovered/Resolved with Sequelae]

NARRATIVE: CASE EVENT DATE: 20190328
